FAERS Safety Report 17027866 (Version 2)
Quarter: 2023Q2

REPORT INFORMATION
  Report Type: Spontaneous
  Country: CN (occurrence: None)
  Receive Date: 20191113
  Receipt Date: 20230419
  Transmission Date: 20230722
  Serious: Yes (Hospitalization)
  Sender: FDA-Public Use
  Company Number: CN-EISAI MEDICAL RESEARCH-EC-2019-065152

PATIENT
  Age: 79 Year
  Sex: Male

DRUGS (1)
  1. DONEPEZIL [Suspect]
     Active Substance: DONEPEZIL
     Indication: Dementia Alzheimer^s type
     Route: 048
     Dates: start: 20191012, end: 20191014

REACTIONS (1)
  - Sinus bradycardia [Not Recovered/Not Resolved]

NARRATIVE: CASE EVENT DATE: 20191014
